FAERS Safety Report 7478122-0 (Version None)
Quarter: 2011Q2

REPORT INFORMATION
  Report Type: 
  Country: None (occurrence: None)
  Receive Date: 20110511
  Receipt Date: 20110511
  Transmission Date: 20111010
  Serious: Yes (Disabling)
  Sender: FDA-Public Use
  Company Number: None

PATIENT
  Age: 42 Year
  Sex: Female
  Weight: 88.6 kg

DRUGS (1)
  1. ASTEPRO [Suspect]
     Indication: COUGH
     Dosage: 2 SPRAYS BID NASAL SPRAY
     Route: 045
     Dates: start: 20100101

REACTIONS (2)
  - AGEUSIA [None]
  - ANOSMIA [None]
